FAERS Safety Report 8282773-3 (Version None)
Quarter: 2012Q2

REPORT INFORMATION
  Report Type: 
  Country: None (occurrence: None)
  Receive Date: 20120413
  Receipt Date: 20120412
  Transmission Date: 20120825
  Serious: No
  Sender: FDA-Public Use
  Company Number: US-PFIZER INC-2012091377

PATIENT

DRUGS (1)
  1. PREMARIN [Suspect]

REACTIONS (1)
  - PAIN [None]
